FAERS Safety Report 11640722 (Version 1)
Quarter: 2015Q4

REPORT INFORMATION
  Report Type: Other
  Country: GB (occurrence: GB)
  Receive Date: 20151019
  Receipt Date: 20151019
  Transmission Date: 20160304
  Serious: Yes (Other)
  Sender: FDA-Public Use
  Company Number: GB-MYLANLABS-2015M1034153

PATIENT

DRUGS (1)
  1. TIZANIDINE. [Suspect]
     Active Substance: TIZANIDINE
     Dosage: 4 MG, QID (16 MILLIGRAM DAILY)
     Route: 065
     Dates: start: 20150902, end: 201509

REACTIONS (12)
  - Musculoskeletal stiffness [Unknown]
  - Pain in extremity [Unknown]
  - Motor dysfunction [Unknown]
  - Abasia [Unknown]
  - Tremor [Unknown]
  - Seizure [Unknown]
  - Psychiatric symptom [Unknown]
  - Emotional disorder [Unknown]
  - Muscle tightness [Unknown]
  - Gait disturbance [Unknown]
  - Walking aid user [Unknown]
  - Product substitution issue [Unknown]

NARRATIVE: CASE EVENT DATE: 201509
